FAERS Safety Report 20286649 (Version 1)
Quarter: 2022Q1

REPORT INFORMATION
  Report Type: Spontaneous
  Country: FR (occurrence: FR)
  Receive Date: 20220103
  Receipt Date: 20220103
  Transmission Date: 20220423
  Serious: Yes (Congenital Anomaly)
  Sender: FDA-Public Use
  Company Number: FR-ABBVIE-21K-056-4217512-00

PATIENT
  Sex: Female

DRUGS (3)
  1. VALPROATE SODIUM [Suspect]
     Active Substance: VALPROATE SODIUM
     Indication: Maternal exposure timing unspecified
     Route: 064
  2. FENSPIRIDE HYDROCHLORIDE [Concomitant]
     Active Substance: FENSPIRIDE HYDROCHLORIDE
     Indication: Maternal exposure timing unspecified
  3. ACETYLCYSTEINE [Concomitant]
     Active Substance: ACETYLCYSTEINE
     Indication: Maternal exposure timing unspecified

REACTIONS (45)
  - Neurodevelopmental disorder [Unknown]
  - Ear, nose and throat disorder [Unknown]
  - Otitis media [Unknown]
  - Drug hypersensitivity [Unknown]
  - Eustachian tube dysfunction [Recovering/Resolving]
  - Eye disorder [Unknown]
  - Conjunctivitis [Unknown]
  - Dacryostenosis acquired [Unknown]
  - Amblyopia [Unknown]
  - Musculoskeletal deformity [Unknown]
  - Foot deformity [Unknown]
  - Knee deformity [Unknown]
  - Talipes [Unknown]
  - Hypermobility syndrome [Unknown]
  - Arachnodactyly [Unknown]
  - Dysarthria [Unknown]
  - Dysphemia [Unknown]
  - Language disorder [Unknown]
  - Dyslexia [Unknown]
  - Disturbance in attention [Unknown]
  - Learning disorder [Unknown]
  - Behaviour disorder [Unknown]
  - Anxiety [Unknown]
  - Aggression [Unknown]
  - Psychomotor skills impaired [Unknown]
  - Dyspraxia [Unknown]
  - Dysgraphia [Unknown]
  - Fine motor delay [Unknown]
  - Lacrimation increased [Unknown]
  - Facial paralysis [Unknown]
  - Hypermetropia [Unknown]
  - Strabismus [Unknown]
  - Astigmatism [Unknown]
  - Skin disorder [Unknown]
  - Dysmorphism [Unknown]
  - Memory impairment [Unknown]
  - Dysphemia [Unknown]
  - Psychomotor hyperactivity [Unknown]
  - Dyscalculia [Unknown]
  - Exanthema subitum [Unknown]
  - Eczema [Unknown]
  - Joint hyperextension [Unknown]
  - Hypermobility syndrome [Unknown]
  - Eyelid disorder [Unknown]
  - Foetal exposure during pregnancy [Unknown]

NARRATIVE: CASE EVENT DATE: 20071003
